FAERS Safety Report 21477575 (Version 1)
Quarter: 2022Q4

REPORT INFORMATION
  Report Type: Other
  Country: AU (occurrence: AU)
  Receive Date: 20221019
  Receipt Date: 20221019
  Transmission Date: 20230113
  Serious: Yes (Other)
  Sender: FDA-Public Use
  Company Number: AU-CELLTRION INC.-2022AU016769

PATIENT

DRUGS (2)
  1. RITUXIMAB [Suspect]
     Active Substance: RITUXIMAB
     Indication: Product used for unknown indication
  2. POSACONAZOLE [Concomitant]
     Active Substance: POSACONAZOLE

REACTIONS (3)
  - Chronic graft versus host disease [Unknown]
  - Disease progression [Unknown]
  - Coronavirus infection [Unknown]
